FAERS Safety Report 8837046 (Version 1)
Quarter: 2012Q4

REPORT INFORMATION
  Report Type: Report from Study
  Country: DE (occurrence: DE)
  Receive Date: 20121012
  Receipt Date: 20121012
  Transmission Date: 20130627
  Serious: Yes (Death, Life-Threatening)
  Sender: FDA-Public Use
  Company Number: DE-PFIZER INC-8-98264-004A

PATIENT
  Age: 8 Year
  Sex: Male
  Weight: 21 kg

DRUGS (19)
  1. TAZOBAC [Suspect]
     Indication: PNEUMONIA
     Dosage: 1.3-2.0 grams three times daily
     Route: 042
     Dates: start: 19971110, end: 19971124
  2. NOVALGIN [Suspect]
     Indication: PYREXIA
     Dosage: 100-400 ml daily
     Route: 042
     Dates: start: 19971107, end: 19971110
  3. ZOVIRAX [Concomitant]
     Dosage: UNK
     Route: 042
     Dates: start: 19971106, end: 19971127
  4. ZOVIRAX [Concomitant]
     Dosage: UNK
     Route: 048
     Dates: start: 19971030, end: 19971105
  5. EUPHYLLIN [Concomitant]
     Dosage: UNK
     Route: 042
     Dates: start: 19971110, end: 19971124
  6. NOVODIGAL [Concomitant]
     Dosage: UNK
     Route: 042
     Dates: start: 19971110, end: 19971111
  7. BUSULFAN [Concomitant]
     Dosage: UNK
     Route: 042
     Dates: start: 19971030, end: 19971031
  8. MYLERAN [Concomitant]
     Dosage: UNK
     Route: 048
     Dates: start: 19971030, end: 19971031
  9. FORTUM [Concomitant]
     Dosage: UNK
     Route: 042
  10. NEUPOGEN [Concomitant]
     Dosage: UNK
     Route: 058
     Dates: start: 19971106, end: 19971118
  11. LASIX [Concomitant]
     Dosage: UNK
     Route: 042
     Dates: start: 19971030, end: 19971127
  12. REFOBACIN [Concomitant]
     Dosage: UNK
     Route: 042
     Dates: start: 19971110, end: 19971113
  13. OCTAGAM [Concomitant]
     Dosage: UNK
     Route: 042
     Dates: start: 19971103, end: 19971111
  14. NOVALGIN [Concomitant]
     Dosage: UNK
     Route: 042
     Dates: start: 19971107, end: 19971110
  15. ZOFRAN [Concomitant]
     Dosage: UNK
     Route: 042
     Dates: start: 19971030, end: 19971114
  16. LUMINAL [Concomitant]
     Dosage: UNK
     Route: 048
     Dates: start: 19971030, end: 19971104
  17. KEPINOL [Concomitant]
     Dosage: UNK
     Route: 048
     Dates: start: 19971030, end: 19971127
  18. THIOTEPA [Concomitant]
     Dosage: UNK
     Route: 042
     Dates: start: 19971101, end: 19971103
  19. VANCOMYCIN ^LEDERLE^ [Concomitant]
     Dosage: UNK
     Route: 042
     Dates: start: 19971112, end: 19971121

REACTIONS (4)
  - Toxic epidermal necrolysis [Fatal]
  - Stevens-Johnson syndrome [Fatal]
  - Rash maculo-papular [Fatal]
  - Multi-organ failure [Fatal]
